FAERS Safety Report 16278895 (Version 3)
Quarter: 2019Q3

REPORT INFORMATION
  Report Type: Spontaneous
  Country: US (occurrence: US)
  Receive Date: 20190506
  Receipt Date: 20190726
  Transmission Date: 20191004
  Serious: Yes (Hospitalization)
  Sender: FDA-Public Use
  Company Number: US-CELGENEUS-USA-20190410758

PATIENT
  Age: 50 Year
  Sex: Male

DRUGS (2)
  1. REVLIMID [Suspect]
     Active Substance: LENALIDOMIDE
     Dosage: 10 MILLIGRAM
     Route: 048
     Dates: start: 201904
  2. REVLIMID [Suspect]
     Active Substance: LENALIDOMIDE
     Indication: PLASMA CELL MYELOMA
     Dosage: 20 MILLIGRAM
     Route: 048
     Dates: start: 20190325

REACTIONS (11)
  - Pneumonia [Recovered/Resolved]
  - Photophobia [Recovered/Resolved]
  - Photophobia [Not Recovered/Not Resolved]
  - Migraine [Recovered/Resolved]
  - White blood cell count decreased [Recovered/Resolved]
  - Blood test abnormal [Not Recovered/Not Resolved]
  - Unevaluable event [Recovered/Resolved]
  - Tinnitus [Recovered/Resolved]
  - Headache [Not Recovered/Not Resolved]
  - Blood potassium decreased [Not Recovered/Not Resolved]
  - Tinnitus [Not Recovered/Not Resolved]

NARRATIVE: CASE EVENT DATE: 2019
